FAERS Safety Report 22324932 (Version 1)
Quarter: 2023Q2

REPORT INFORMATION
  Report Type: Spontaneous
  Country: US (occurrence: US)
  Receive Date: 20230516
  Receipt Date: 20230516
  Transmission Date: 20230721
  Serious: Yes (Hospitalization, Other)
  Sender: FDA-Public Use
  Company Number: US-BAYER-2023A062164

PATIENT

DRUGS (1)
  1. GADAVIST [Suspect]
     Active Substance: GADOBUTROL
     Dosage: UNK
     Route: 042

REACTIONS (10)
  - Chest discomfort [None]
  - Nausea [None]
  - Pruritus [None]
  - Urticaria [None]
  - Seizure [None]
  - Muscle rigidity [None]
  - Dyspnoea [None]
  - Flushing [None]
  - Blood pressure fluctuation [None]
  - Vomiting [None]
